FAERS Safety Report 25117579 (Version 1)
Quarter: 2025Q1

REPORT INFORMATION
  Report Type: Report from Study
  Country: IT (occurrence: IT)
  Receive Date: 20250325
  Receipt Date: 20250325
  Transmission Date: 20250409
  Serious: Yes (Hospitalization, Other)
  Sender: AUROBINDO
  Company Number: IT-009507513-2409ITA001449

PATIENT
  Age: 86 Year
  Sex: Male

DRUGS (3)
  1. CEFTRIAXONE [Suspect]
     Active Substance: CEFTRIAXONE
     Indication: Vascular device infection
     Dosage: 2 GRAM, ONCE A DAY
     Route: 042
     Dates: start: 20200706, end: 20200710
  2. PIPERACILLIN AND TAZOBACTAM [Suspect]
     Active Substance: PIPERACILLIN SODIUM\TAZOBACTAM SODIUM
     Indication: Vascular device infection
     Route: 065
     Dates: start: 20200710, end: 20200719
  3. DAPTOMYCIN [Suspect]
     Active Substance: DAPTOMYCIN
     Indication: Vascular device infection
     Dosage: 10 MILLIGRAM/KILOGRAM, ONCE A DAY
     Route: 042
     Dates: start: 20200706, end: 20200711

REACTIONS (3)
  - Thrombocytopenia [Recovered/Resolved]
  - Pancytopenia [Unknown]
  - Anaemia [Unknown]

NARRATIVE: CASE EVENT DATE: 20200710
